FAERS Safety Report 17026475 (Version 1)
Quarter: 2019Q4

REPORT INFORMATION
  Report Type: Report from Study
  Country: GB (occurrence: GB)
  Receive Date: 20191113
  Receipt Date: 20191113
  Transmission Date: 20200122
  Serious: Yes (Hospitalization)
  Sender: FDA-Public Use
  Company Number: NVSC2019GB030994

PATIENT
  Age: 56 Year
  Sex: Female

DRUGS (3)
  1. KISQALI [Suspect]
     Active Substance: RIBOCICLIB
     Indication: BREAST CANCER METASTATIC
     Dosage: 600 MG
     Route: 048
     Dates: start: 20191102
  2. MORPHINE [Suspect]
     Active Substance: MORPHINE
     Indication: PAIN
     Dosage: 2-10 MG
     Route: 065
     Dates: start: 20191103
  3. CODEINE [Suspect]
     Active Substance: CODEINE
     Indication: PAIN
     Dosage: 30 MG
     Route: 065
     Dates: start: 20191103

REACTIONS (2)
  - Vomiting [Recovered/Resolved]
  - Nausea [Unknown]

NARRATIVE: CASE EVENT DATE: 20191103
